FAERS Safety Report 26217996 (Version 1)
Quarter: 2025Q4

REPORT INFORMATION
  Report Type: Spontaneous
  Country: US (occurrence: US)
  Receive Date: 20251231
  Receipt Date: 20251231
  Transmission Date: 20260117
  Serious: No
  Sender: ROCHE
  Company Number: US-ROCHE-10000471240

PATIENT
  Age: 44 Year
  Sex: Female

DRUGS (3)
  1. XOLAIR [Suspect]
     Active Substance: OMALIZUMAB
     Indication: Urticaria
     Dosage: 300 MG/2ML
     Route: 058
     Dates: start: 202204
  2. DUPIXENT [Concomitant]
     Active Substance: DUPILUMAB
     Indication: Urticaria
  3. DUPIXENT [Concomitant]
     Active Substance: DUPILUMAB
     Indication: Seasonal allergy

REACTIONS (3)
  - Product administration error [Unknown]
  - Off label use [Unknown]
  - Nausea [Unknown]
